FAERS Safety Report 4877468-X (Version None)
Quarter: 2006Q1

REPORT INFORMATION
  Report Type: 
  Country: None (occurrence: None)
  Receive Date: 20060111
  Receipt Date: 20051230
  Transmission Date: 20060701
  Serious: Yes (Other)
  Sender: FDA-Public Use
  Company Number: GB-JNJFOC-20060100446

PATIENT

DRUGS (2)
  1. METHYLPHENIDATE HCL [Suspect]
     Indication: UNEVALUABLE EVENT
     Route: 065
  2. ATOMOXETINE [Concomitant]

REACTIONS (1)
  - JAUNDICE [None]
